FAERS Safety Report 12784923 (Version 1)
Quarter: 2016Q3

REPORT INFORMATION
  Report Type: Spontaneous
  Country: US (occurrence: US)
  Receive Date: 20160927
  Receipt Date: 20160927
  Transmission Date: 20161109
  Serious: No
  Sender: FDA-Public Use
  Company Number: US-TALECRIS-GTI003124

PATIENT
  Age: 57 Year
  Sex: Female
  Weight: 71 kg

DRUGS (10)
  1. PROLASTIN-C [Suspect]
     Active Substance: .ALPHA.1-PROTEINASE INHIBITOR HUMAN
     Indication: ALPHA-1 ANTI-TRYPSIN DEFICIENCY
     Route: 042
     Dates: start: 20150220, end: 20150326
  2. TRICOR /00090101/ [Concomitant]
     Active Substance: ADENOSINE
  3. MYRBETRIQ [Concomitant]
     Active Substance: MIRABEGRON
  4. TRAMADOL. [Concomitant]
     Active Substance: TRAMADOL
  5. PROLASTIN-C [Suspect]
     Active Substance: .ALPHA.1-PROTEINASE INHIBITOR HUMAN
     Indication: ALPHA-1 ANTI-TRYPSIN DEFICIENCY
     Route: 042
     Dates: start: 20150402
  6. ZETIA [Concomitant]
     Active Substance: EZETIMIBE
  7. VITAMIN D [Concomitant]
     Active Substance: CHOLECALCIFEROL
  8. CELEBREX [Concomitant]
     Active Substance: CELECOXIB
  9. VENLAFAXINE XR [Concomitant]
     Active Substance: VENLAFAXINE HYDROCHLORIDE
  10. REMERON [Concomitant]
     Active Substance: MIRTAZAPINE

REACTIONS (4)
  - Weight increased [Recovering/Resolving]
  - Nausea [Recovered/Resolved]
  - Headache [Recovered/Resolved]
  - Fatigue [Recovered/Resolved]

NARRATIVE: CASE EVENT DATE: 20150220
